FAERS Safety Report 5203200-6 (Version None)
Quarter: 2006Q4

REPORT INFORMATION
  Report Type: 
  Country: None (occurrence: None)
  Receive Date: 20061027
  Receipt Date: 20060523
  Transmission Date: 20070319
  Serious: Yes (Other)
  Sender: FDA-Public Use
  Company Number: HQWYE533524MAY06

PATIENT
  Age: 68 Year
  Sex: Female

DRUGS (2)
  1. PREMARIN [Suspect]
  2. PROVERA [Suspect]

REACTIONS (1)
  - BREAST CANCER [None]
